FAERS Safety Report 8398628 (Version 4)
Quarter: 2014Q4

REPORT INFORMATION
  Report Type: Spontaneous
  Country: US (occurrence: US)
  Receive Date: 20120209
  Receipt Date: 20141015
  Transmission Date: 20150529
  Serious: Yes (Hospitalization, Other)
  Sender: FDA-Public Use
  Company Number: US-ASTRAZENECA-2012SE07933

PATIENT
  Age: 690 Month
  Sex: Female
  Weight: 38.6 kg

DRUGS (15)
  1. NEXIUM [Suspect]
     Active Substance: ESOMEPRAZOLE MAGNESIUM
     Indication: GASTROOESOPHAGEAL REFLUX DISEASE
     Route: 048
  2. SYMBICORT [Suspect]
     Active Substance: BUDESONIDE\FORMOTEROL FUMARATE DIHYDRATE
     Indication: CHRONIC OBSTRUCTIVE PULMONARY DISEASE
     Dosage: 320 UG, TWO TIMES A DAY
     Route: 055
     Dates: start: 2005
  3. ALBUTEROL SOLUTION [Concomitant]
     Indication: CHRONIC OBSTRUCTIVE PULMONARY DISEASE
     Dates: start: 2008
  4. CREON [Concomitant]
     Active Substance: PANCRELIPASE AMYLASE\PANCRELIPASE LIPASE\PANCRELIPASE PROTEASE
     Indication: CYSTIC FIBROSIS
     Dates: start: 2013
  5. SODIUM INHALER [Concomitant]
     Indication: CHRONIC OBSTRUCTIVE PULMONARY DISEASE
     Route: 055
     Dates: start: 2010
  6. SODIUM INHALER [Concomitant]
     Indication: CYSTIC FIBROSIS
     Route: 055
     Dates: start: 2010
  7. POTASSIUM [Concomitant]
     Active Substance: POTASSIUM
     Route: 048
  8. ADEK VITAMINS [Concomitant]
     Indication: CYSTIC FIBROSIS
     Dosage: BID
     Route: 048
     Dates: start: 2007
  9. TOPROL XL [Suspect]
     Active Substance: METOPROLOL SUCCINATE
     Indication: PALPITATIONS
     Route: 048
     Dates: start: 201407
  10. HYDROXYUREA. [Concomitant]
     Active Substance: HYDROXYUREA
     Indication: NEOPLASM MALIGNANT
     Route: 048
     Dates: start: 201405
  11. NEXIUM [Suspect]
     Active Substance: ESOMEPRAZOLE MAGNESIUM
     Indication: GASTROOESOPHAGEAL REFLUX DISEASE
     Route: 048
     Dates: end: 2014
  12. ALBUTEROL SOLUTION [Concomitant]
     Indication: CYSTIC FIBROSIS
     Dates: start: 2008
  13. PROAIR HFA [Concomitant]
     Active Substance: ALBUTEROL SULFATE
     Indication: CHRONIC OBSTRUCTIVE PULMONARY DISEASE
     Dosage: 2 PUFFS Q4 HR, PRN
     Route: 048
  14. ASPIRIN. [Concomitant]
     Active Substance: ASPIRIN
     Indication: CARDIAC DISORDER
     Route: 048
     Dates: start: 201405
  15. PHENERGAN [Concomitant]
     Active Substance: PROMETHAZINE HYDROCHLORIDE
     Indication: NAUSEA
     Route: 048
     Dates: start: 1994

REACTIONS (19)
  - Peripheral swelling [Unknown]
  - Menopause [Unknown]
  - Cough [Unknown]
  - Hypertension [Unknown]
  - Palpitations [Unknown]
  - Alopecia [Unknown]
  - Bone density abnormal [Unknown]
  - Underweight [Unknown]
  - Cardiac disorder [Unknown]
  - Asthenia [Unknown]
  - Rib fracture [Unknown]
  - Leukaemia [Unknown]
  - Pneumonia [Unknown]
  - Spinal fracture [Unknown]
  - Intentional product misuse [Unknown]
  - Weight increased [Unknown]
  - Osteoporosis [Unknown]
  - Narcolepsy [Unknown]
  - Drug dose omission [Unknown]

NARRATIVE: CASE EVENT DATE: 2012
